FAERS Safety Report 10085820 (Version 5)
Quarter: 2018Q4

REPORT INFORMATION
  Report Type: Spontaneous
  Country: US (occurrence: US)
  Receive Date: 20140418
  Receipt Date: 20181214
  Transmission Date: 20190204
  Serious: No
  Sender: FDA-Public Use
  Company Number: US-PFIZER INC-2014104807

PATIENT
  Age: 57 Year
  Sex: Female

DRUGS (14)
  1. AXID AR [Suspect]
     Active Substance: NIZATIDINE
     Dosage: UNK
  2. PREDNISONE. [Suspect]
     Active Substance: PREDNISONE
     Dosage: UNK
  3. MORPHINE SULFATE. [Suspect]
     Active Substance: MORPHINE SULFATE
     Dosage: UNK
  4. MEDROL [Suspect]
     Active Substance: METHYLPREDNISOLONE
     Dosage: UNK
  5. SULFASALAZINE. [Suspect]
     Active Substance: SULFASALAZINE
  6. VALIUM [Suspect]
     Active Substance: DIAZEPAM
     Dosage: UNK
  7. LEVAQUIN [Suspect]
     Active Substance: LEVOFLOXACIN
  8. SULFUR. [Suspect]
     Active Substance: SULFUR
     Dosage: UNK
  9. CODEINE SULFATE. [Suspect]
     Active Substance: CODEINE SULFATE
     Dosage: UNK
  10. PRILOSEC [Suspect]
     Active Substance: OMEPRAZOLE MAGNESIUM
     Dosage: UNK
  11. PRIDINOL [Suspect]
     Active Substance: PRIDINOL
     Dosage: UNK
  12. SILVER SULFADIAZENE [Suspect]
     Active Substance: SILVER SULFADIAZINE
     Dosage: UNK
  13. ALLEGRA-D [Suspect]
     Active Substance: FEXOFENADINE\PSEUDOEPHEDRINE
     Dosage: UNK
  14. PERCOCET [Suspect]
     Active Substance: ACETAMINOPHEN\OXYCODONE HYDROCHLORIDE
     Dosage: UNK

REACTIONS (1)
  - Drug hypersensitivity [Unknown]
